FAERS Safety Report 4549479-5 (Version None)
Quarter: 2005Q1

REPORT INFORMATION
  Report Type: 
  Country: None (occurrence: None)
  Receive Date: 20050106
  Receipt Date: 20041230
  Transmission Date: 20050727
  Serious: Yes (Other)
  Sender: FDA-Public Use
  Company Number: 2004-05416

PATIENT
  Age: 14 Year
  Sex: Male

DRUGS (1)
  1. ANDROPATCH (TESTOSTERONE) TRANSDERMAL PATCH, 2.5MG [Suspect]
     Indication: PRIMARY HYPOGONADISM
     Dosage: 2.5 MG, TID

REACTIONS (2)
  - HYPERBILIRUBINAEMIA [None]
  - THROMBOCYTOPENIA [None]
